FAERS Safety Report 9438091 (Version 3)
Quarter: 2013Q3

REPORT INFORMATION
  Report Type: Spontaneous
  Country: JP (occurrence: JP)
  Receive Date: 20130802
  Receipt Date: 20130927
  Transmission Date: 20140515
  Serious: Yes (Death)
  Sender: FDA-Public Use
  Company Number: JP-PFIZER INC-2013221719

PATIENT
  Age: 86 Year
  Sex: Female

DRUGS (16)
  1. TYGACIL [Suspect]
     Indication: ACINETOBACTER INFECTION
     Dosage: 150 MG/DAY
     Route: 041
     Dates: start: 20130717, end: 20130717
  2. TYGACIL [Suspect]
     Dosage: 100 MG/DAY
     Route: 041
     Dates: start: 20130718
  3. KALGUT [Concomitant]
     Dosage: 30 MG/DAY
     Route: 048
  4. SIGMART [Concomitant]
     Dosage: 15 MG/DAY
     Route: 048
  5. TAKEPRON OD [Concomitant]
     Dosage: 30 MG/DAY
     Route: 048
  6. LASIX [Concomitant]
     Dosage: 40 MG/DAY
     Route: 048
  7. SPIRONOLACTONE [Concomitant]
     Dosage: 1 TABLET/DAY
     Route: 048
  8. FERROMIA [Concomitant]
     Dosage: 100 MG/DAY
     Route: 048
  9. RISPERIDONE [Concomitant]
     Dosage: 2 TABLETS/DAY
     Route: 048
  10. GEBEN [Concomitant]
     Dosage: 100 G/DAY
     Route: 061
     Dates: start: 20130722, end: 20130722
  11. NEGMIN SUGAR [Concomitant]
     Dosage: 300 G/DAY
     Route: 061
     Dates: start: 20130722, end: 20130722
  12. TULOBUTEROL [Concomitant]
     Dosage: 1 SHEET/DAY
     Route: 062
     Dates: start: 20130709
  13. THIOSPEN [Concomitant]
     Dosage: 1 AMPULE/DAY
  14. NOVOLIN R [Concomitant]
     Dosage: 0.1 ML/DAY
  15. ELNEOPA NO.2 INJECTION [Concomitant]
     Dosage: 1 KIT/DAY
     Dates: start: 20130713
  16. EXACIN [Concomitant]
     Dosage: 2 AMPULES /DAY
     Dates: start: 20130716, end: 20130719

REACTIONS (1)
  - Circulatory collapse [Fatal]
